FAERS Safety Report 5070653-6 (Version None)
Quarter: 2006Q3

REPORT INFORMATION
  Report Type: 
  Country: None (occurrence: None)
  Receive Date: 20060804
  Receipt Date: 20050824
  Transmission Date: 20061208
  Serious: No
  Sender: FDA-Public Use
  Company Number: US-GLAXOSMITHKLINE-A0571589A

PATIENT
  Age: 59 Year
  Sex: Female

DRUGS (1)
  1. NICORETTE (MINT) [Suspect]
     Dates: start: 20050822

REACTIONS (5)
  - DYSPEPSIA [None]
  - FEELING ABNORMAL [None]
  - MALAISE [None]
  - PAIN IN JAW [None]
  - TOOTHACHE [None]
